FAERS Safety Report 20412992 (Version 2)
Quarter: 2022Q1

REPORT INFORMATION
  Report Type: Spontaneous
  Country: US (occurrence: None)
  Receive Date: 20220201
  Receipt Date: 20220203
  Transmission Date: 20220424
  Serious: Yes (Other)
  Sender: FDA-Public Use
  Company Number: 2022A048989

PATIENT
  Sex: Female

DRUGS (3)
  1. FASLODEX [Suspect]
     Active Substance: FULVESTRANT
     Dosage: 50 MG IN 1 ML
     Route: 030
  2. IBRANCE [Suspect]
     Active Substance: PALBOCICLIB
     Route: 048
  3. BYDUREON BCISE [Suspect]
     Active Substance: EXENATIDE
     Dosage: 2 MG IN 0.85 ML
     Route: 065

REACTIONS (4)
  - Malignant neoplasm progression [Unknown]
  - Drug ineffective [Unknown]
  - Device malfunction [Unknown]
  - Device leakage [Unknown]
